FAERS Safety Report 7722241-8 (Version None)
Quarter: 2011Q3

REPORT INFORMATION
  Report Type: 
  Country: None (occurrence: None)
  Receive Date: 20110831
  Receipt Date: 20110819
  Transmission Date: 20111222
  Serious: Yes (Other)
  Sender: FDA-Public Use
  Company Number: US-CELGENEUS-163-21880-11082507

PATIENT
  Sex: Male
  Weight: 83.99 kg

DRUGS (17)
  1. REVLIMID [Suspect]
     Indication: MULTIPLE MYELOMA
     Dosage: 25 MILLIGRAM
     Route: 048
     Dates: start: 20101213
  2. CELEBREX [Concomitant]
     Route: 065
  3. OXYCODONE HCL [Concomitant]
     Route: 065
  4. CENTRUM SILVER [Concomitant]
     Route: 065
  5. SALMON OIL [Concomitant]
     Route: 065
  6. VALTREX [Concomitant]
     Route: 065
  7. REVLIMID [Suspect]
     Dosage: 10 MILLIGRAM
     Route: 048
     Dates: start: 20110823
  8. CLARITHROMYCIN [Concomitant]
     Route: 065
  9. CALCIUM D [Concomitant]
     Route: 065
  10. DEXAMETHASONE [Concomitant]
     Route: 065
  11. REVLIMID [Suspect]
     Dosage: 10 MILLIGRAM
     Route: 048
     Dates: start: 20110501
  12. ALPHA LIPOIC AMINO ACID [Concomitant]
     Route: 065
  13. VITAMIN B [Concomitant]
     Route: 065
  14. WARFARIN SODIUM [Concomitant]
     Route: 065
  15. PRAVASTATIN [Concomitant]
     Route: 065
  16. REVLIMID [Suspect]
     Dosage: 15 MILLIGRAM
     Route: 048
     Dates: start: 20110301
  17. FLOMAX [Concomitant]
     Route: 065

REACTIONS (1)
  - HERNIA [None]
